FAERS Safety Report 7692769-8 (Version None)
Quarter: 2011Q3

REPORT INFORMATION
  Report Type: 
  Country: None (occurrence: None)
  Receive Date: 20110819
  Receipt Date: 20110808
  Transmission Date: 20111222
  Serious: Yes (Hospitalization, Other)
  Sender: FDA-Public Use
  Company Number: US-ELI_LILLY_AND_COMPANY-US201106004326

PATIENT
  Age: 77 Year
  Sex: Female

DRUGS (4)
  1. FORTEO [Suspect]
     Indication: OSTEOPOROSIS
     Dosage: 20 UG, QD
     Route: 065
     Dates: start: 20100901
  2. PREDNISONE [Concomitant]
  3. FORTEO [Suspect]
     Dosage: 20 UG, QD
  4. VITAMIN TAB [Concomitant]

REACTIONS (3)
  - JOINT ARTHROPLASTY [None]
  - CHONDROPATHY [None]
  - ARTHRITIS [None]
